FAERS Safety Report 8157481-X (Version None)
Quarter: 2012Q1

REPORT INFORMATION
  Report Type: 
  Country: None (occurrence: None)
  Receive Date: 20120222
  Receipt Date: 20120214
  Transmission Date: 20120608
  Serious: Yes (Hospitalization)
  Sender: FDA-Public Use
  Company Number: JP-BRISTOL-MYERS SQUIBB COMPANY-16246928

PATIENT
  Age: 64 Year
  Sex: Male
  Weight: 68 kg

DRUGS (2)
  1. HEPSERA [Concomitant]
     Indication: HEPATITIS B
     Route: 048
     Dates: start: 20111001
  2. BARACLUDE [Suspect]
     Indication: HEPATITIS B
     Dosage: 3RD WEEK
     Route: 048
     Dates: start: 20080222

REACTIONS (2)
  - DRUG RESISTANCE [None]
  - LIVER FUNCTION TEST ABNORMAL [None]
